FAERS Safety Report 5115085-7 (Version None)
Quarter: 2006Q3

REPORT INFORMATION
  Report Type: 
  Country: None (occurrence: None)
  Receive Date: 20060926
  Receipt Date: 20060816
  Transmission Date: 20061208
  Serious: Yes (Other)
  Sender: FDA-Public Use
  Company Number: 2006UW16384

PATIENT
  Age: 52 Year
  Sex: Female
  Weight: 95.5 kg

DRUGS (6)
  1. SEROQUEL [Suspect]
     Indication: SCHIZOAFFECTIVE DISORDER
     Route: 048
     Dates: start: 20060201, end: 20060612
  2. SEROQUEL [Suspect]
     Indication: SUICIDAL IDEATION
     Route: 048
     Dates: start: 20060201, end: 20060612
  3. SEROQUEL [Suspect]
     Indication: ANXIETY
     Route: 048
     Dates: start: 20060201, end: 20060612
  4. RISPERDAL [Concomitant]
     Indication: SCHIZOAFFECTIVE DISORDER
     Dosage: 2 MG AND 1 MG
     Route: 048
     Dates: start: 20040601
  5. DEPAKOTE ER [Concomitant]
     Indication: SCHIZOAFFECTIVE DISORDER
     Route: 048
     Dates: start: 20060601
  6. REMERON [Concomitant]
     Indication: SCHIZOAFFECTIVE DISORDER
     Route: 048
     Dates: start: 20051001

REACTIONS (3)
  - ANXIETY [None]
  - RESTLESS LEGS SYNDROME [None]
  - SUICIDAL IDEATION [None]
